FAERS Safety Report 9891743 (Version 1)
Quarter: 2014Q1

REPORT INFORMATION
  Report Type: Spontaneous
  Country: US (occurrence: US)
  Receive Date: 20140212
  Receipt Date: 20140212
  Transmission Date: 20141002
  Serious: Yes (Other)
  Sender: FDA-Public Use
  Company Number: US-ELI_LILLY_AND_COMPANY-US201402000421

PATIENT
  Sex: Female

DRUGS (2)
  1. CYMBALTA [Suspect]
     Indication: DEPRESSION
     Dosage: 60 MG, UNKNOWN
     Route: 065
     Dates: start: 2010, end: 201401
  2. CYMBALTA [Suspect]
     Dosage: 60 MG, SINGLE
     Route: 065
     Dates: start: 20140202, end: 20140202

REACTIONS (5)
  - Suicidal ideation [Unknown]
  - Mood swings [Unknown]
  - Insomnia [Unknown]
  - Drug withdrawal syndrome [Unknown]
  - Wrong patient received medication [Unknown]
